FAERS Safety Report 8906263 (Version 1)
Quarter: 2012Q4

REPORT INFORMATION
  Report Type: Spontaneous
  Country: US (occurrence: None)
  Receive Date: 20121112
  Receipt Date: 20121112
  Transmission Date: 20130627
  Serious: Yes (Death)
  Sender: FDA-Public Use
  Company Number: None

PATIENT
  Age: 65 Year
  Sex: Female
  Weight: 66.68 kg

DRUGS (2)
  1. INFED [Suspect]
     Indication: IRON DEFICIENCY ANEMIA
     Dosage: 40 ml = 2000 mg, one-time, IV Drip
     Route: 041
     Dates: start: 20121108, end: 20121108
  2. PROMETHAZINE [Suspect]
     Indication: NAUSEA
     Route: 040
     Dates: start: 20121108, end: 20121108

REACTIONS (6)
  - Nausea [None]
  - Infusion related reaction [None]
  - Unresponsive to stimuli [None]
  - Apnoea [None]
  - Respiratory arrest [None]
  - Cardiac arrest [None]
